FAERS Safety Report 25469391 (Version 3)
Quarter: 2025Q3

REPORT INFORMATION
  Report Type: Spontaneous
  Country: EU (occurrence: EU)
  Receive Date: 20250623
  Receipt Date: 20250721
  Transmission Date: 20251020
  Serious: Yes (Hospitalization, Other)
  Sender: MYLAN
  Company Number: EU-SANDOZ-SDZ2025DE040181

PATIENT
  Age: 53 Year
  Sex: Female
  Weight: 63 kg

DRUGS (36)
  1. ATORVASTATIN [Suspect]
     Active Substance: ATORVASTATIN
     Indication: Hypercholesterolaemia
     Dosage: 40 MILLIGRAM, QD
     Dates: start: 202403
  2. ATORVASTATIN [Suspect]
     Active Substance: ATORVASTATIN
     Dosage: 40 MILLIGRAM, QD
     Route: 048
     Dates: start: 202403
  3. ATORVASTATIN [Suspect]
     Active Substance: ATORVASTATIN
     Dosage: 40 MILLIGRAM, QD
     Route: 048
     Dates: start: 202403
  4. ATORVASTATIN [Suspect]
     Active Substance: ATORVASTATIN
     Dosage: 40 MILLIGRAM, QD
     Dates: start: 202403
  5. EZETIMIBE [Suspect]
     Active Substance: EZETIMIBE
     Indication: Hypercholesterolaemia
     Dosage: 10 MILLIGRAM, QD
     Dates: start: 20250204
  6. EZETIMIBE [Suspect]
     Active Substance: EZETIMIBE
     Dosage: 10 MILLIGRAM, QD
     Route: 048
     Dates: start: 20250204
  7. EZETIMIBE [Suspect]
     Active Substance: EZETIMIBE
     Dosage: 10 MILLIGRAM, QD
     Route: 048
     Dates: start: 20250204
  8. EZETIMIBE [Suspect]
     Active Substance: EZETIMIBE
     Dosage: 10 MILLIGRAM, QD
     Dates: start: 20250204
  9. CEFTRIAXONE [Concomitant]
     Active Substance: CEFTRIAXONE
     Indication: Pyelonephritis
     Dates: start: 20250519, end: 20250521
  10. CEFTRIAXONE [Concomitant]
     Active Substance: CEFTRIAXONE
     Route: 042
     Dates: start: 20250519, end: 20250521
  11. CEFTRIAXONE [Concomitant]
     Active Substance: CEFTRIAXONE
     Route: 042
     Dates: start: 20250519, end: 20250521
  12. CEFTRIAXONE [Concomitant]
     Active Substance: CEFTRIAXONE
     Dates: start: 20250519, end: 20250521
  13. CEFPODOXIME [Concomitant]
     Active Substance: CEFPODOXIME
     Indication: Product used for unknown indication
     Dosage: 200 MILLIGRAM, BID
     Dates: start: 20250522, end: 20250601
  14. CEFPODOXIME [Concomitant]
     Active Substance: CEFPODOXIME
     Dosage: 200 MILLIGRAM, BID
     Route: 048
     Dates: start: 20250522, end: 20250601
  15. CEFPODOXIME [Concomitant]
     Active Substance: CEFPODOXIME
     Dosage: 200 MILLIGRAM, BID
     Route: 048
     Dates: start: 20250522, end: 20250601
  16. CEFPODOXIME [Concomitant]
     Active Substance: CEFPODOXIME
     Dosage: 200 MILLIGRAM, BID
     Dates: start: 20250522, end: 20250601
  17. BEMPEDOIC ACID [Concomitant]
     Active Substance: BEMPEDOIC ACID
     Indication: Product used for unknown indication
     Dosage: 180 MILLIGRAM, QD
     Dates: start: 20250307
  18. BEMPEDOIC ACID [Concomitant]
     Active Substance: BEMPEDOIC ACID
     Dosage: 180 MILLIGRAM, QD
     Route: 065
     Dates: start: 20250307
  19. BEMPEDOIC ACID [Concomitant]
     Active Substance: BEMPEDOIC ACID
     Dosage: 180 MILLIGRAM, QD
     Route: 065
     Dates: start: 20250307
  20. BEMPEDOIC ACID [Concomitant]
     Active Substance: BEMPEDOIC ACID
     Dosage: 180 MILLIGRAM, QD
     Dates: start: 20250307
  21. RIVAROXABAN [Concomitant]
     Active Substance: RIVAROXABAN
     Indication: Arteriosclerosis
  22. RIVAROXABAN [Concomitant]
     Active Substance: RIVAROXABAN
     Route: 048
  23. RIVAROXABAN [Concomitant]
     Active Substance: RIVAROXABAN
     Route: 048
  24. RIVAROXABAN [Concomitant]
     Active Substance: RIVAROXABAN
  25. ASPIRIN [Concomitant]
     Active Substance: ASPIRIN
     Indication: Arteriosclerosis
     Dosage: 100 MILLIGRAM, QD
     Dates: start: 2014
  26. ASPIRIN [Concomitant]
     Active Substance: ASPIRIN
     Dosage: 100 MILLIGRAM, QD
     Route: 048
     Dates: start: 2014
  27. ASPIRIN [Concomitant]
     Active Substance: ASPIRIN
     Dosage: 100 MILLIGRAM, QD
     Route: 048
     Dates: start: 2014
  28. ASPIRIN [Concomitant]
     Active Substance: ASPIRIN
     Dosage: 100 MILLIGRAM, QD
     Dates: start: 2014
  29. METAMIZOLE [Concomitant]
     Active Substance: METAMIZOLE
     Indication: Pain in extremity
  30. METAMIZOLE [Concomitant]
     Active Substance: METAMIZOLE
     Route: 048
  31. METAMIZOLE [Concomitant]
     Active Substance: METAMIZOLE
     Route: 048
  32. METAMIZOLE [Concomitant]
     Active Substance: METAMIZOLE
  33. ATORVASTATIN [Concomitant]
     Active Substance: ATORVASTATIN
     Indication: Product used for unknown indication
     Dosage: 40 MILLIGRAM, QD,(40 MG/DAY)
     Dates: start: 202403
  34. ATORVASTATIN [Concomitant]
     Active Substance: ATORVASTATIN
     Dosage: 40 MILLIGRAM, QD,(40 MG/DAY)
     Route: 048
     Dates: start: 202403
  35. ATORVASTATIN [Concomitant]
     Active Substance: ATORVASTATIN
     Dosage: 40 MILLIGRAM, QD,(40 MG/DAY)
     Route: 048
     Dates: start: 202403
  36. ATORVASTATIN [Concomitant]
     Active Substance: ATORVASTATIN
     Dosage: 40 MILLIGRAM, QD,(40 MG/DAY)
     Dates: start: 202403

REACTIONS (4)
  - Pyelonephritis [Recovered/Resolved]
  - Nephrolithiasis [Recovered/Resolved]
  - Flank pain [Recovered/Resolved]
  - Pyrexia [Recovered/Resolved]

NARRATIVE: CASE EVENT DATE: 20250518
